FAERS Safety Report 16435871 (Version 1)
Quarter: 2019Q2

REPORT INFORMATION
  Report Type: Spontaneous
  Country: NL (occurrence: NL)
  Receive Date: 20190614
  Receipt Date: 20190614
  Transmission Date: 20190711
  Serious: Yes (Other)
  Sender: FDA-Public Use
  Company Number: NL-TEVA-2019-NL-1062477

PATIENT
  Age: 27 Year
  Sex: Male
  Weight: 54 kg

DRUGS (2)
  1. FINASTERIDE FILMOMHULDE TABLET, 1 MG (MILLIGRAM) [Suspect]
     Active Substance: FINASTERIDE
     Indication: ALOPECIA
     Dosage: 1DD1,1 MG PER DAY
     Dates: start: 20190325, end: 20190409
  2. WELLBUTRIN 300 MG [Concomitant]

REACTIONS (1)
  - Suicidal ideation [Recovered/Resolved]

NARRATIVE: CASE EVENT DATE: 20190409
